FAERS Safety Report 23529195 (Version 4)
Quarter: 2024Q2

REPORT INFORMATION
  Report Type: Spontaneous
  Country: CA (occurrence: CA)
  Receive Date: 20240216
  Receipt Date: 20240529
  Transmission Date: 20240716
  Serious: Yes (Death, Other)
  Sender: FDA-Public Use
  Company Number: CA-HALEON-CACH2024AMR007768

PATIENT
  Age: 43 Year
  Sex: Female
  Weight: 96 kg

DRUGS (128)
  1. CETIRIZINE HYDROCHLORIDE [Suspect]
     Active Substance: CETIRIZINE HYDROCHLORIDE
     Indication: Rheumatoid arthritis
     Dosage: 25 MG
     Route: 065
  2. CETIRIZINE HYDROCHLORIDE [Suspect]
     Active Substance: CETIRIZINE HYDROCHLORIDE
     Dosage: 25 MG
     Route: 065
  3. CETIRIZINE HYDROCHLORIDE [Suspect]
     Active Substance: CETIRIZINE HYDROCHLORIDE
     Dosage: 25 MG
     Route: 065
  4. CETIRIZINE HYDROCHLORIDE [Suspect]
     Active Substance: CETIRIZINE HYDROCHLORIDE
     Dosage: 10 MG
     Route: 048
  5. CETIRIZINE HYDROCHLORIDE [Suspect]
     Active Substance: CETIRIZINE HYDROCHLORIDE
     Dosage: 25 MG
     Route: 048
  6. CETIRIZINE HYDROCHLORIDE [Suspect]
     Active Substance: CETIRIZINE HYDROCHLORIDE
     Dosage: 10 MG
     Route: 065
  7. CETIRIZINE HYDROCHLORIDE [Suspect]
     Active Substance: CETIRIZINE HYDROCHLORIDE
     Dosage: 10 MG
     Route: 048
  8. CETIRIZINE HYDROCHLORIDE [Suspect]
     Active Substance: CETIRIZINE HYDROCHLORIDE
     Dosage: 25 MG
     Route: 048
  9. CETIRIZINE HYDROCHLORIDE [Suspect]
     Active Substance: CETIRIZINE HYDROCHLORIDE
     Dosage: 10 MG
     Route: 065
  10. CETIRIZINE HYDROCHLORIDE [Suspect]
     Active Substance: CETIRIZINE HYDROCHLORIDE
     Dosage: 25 MG
     Route: 048
  11. CETIRIZINE HYDROCHLORIDE [Suspect]
     Active Substance: CETIRIZINE HYDROCHLORIDE
     Dosage: 10 MG
     Route: 065
  12. CETIRIZINE HYDROCHLORIDE [Suspect]
     Active Substance: CETIRIZINE HYDROCHLORIDE
     Dosage: 10 MG
     Route: 048
  13. LEFLUNOMIDE [Suspect]
     Active Substance: LEFLUNOMIDE
     Indication: Rheumatoid arthritis
     Dosage: 10 MG, QD
     Route: 048
  14. LEFLUNOMIDE [Suspect]
     Active Substance: LEFLUNOMIDE
     Dosage: 20 MG, QD
     Route: 048
  15. OXYCODONE [Suspect]
     Active Substance: OXYCODONE\OXYCODONE HYDROCHLORIDE
     Indication: Product used for unknown indication
     Dosage: UNK
     Route: 065
  16. CIMZIA [Suspect]
     Active Substance: CERTOLIZUMAB PEGOL
     Indication: Rheumatoid arthritis
     Dosage: 400 MG
     Route: 058
  17. CIMZIA [Suspect]
     Active Substance: CERTOLIZUMAB PEGOL
     Indication: Psoriasis
  18. FLUMETHASONE PIVALATE [Suspect]
     Active Substance: FLUMETHASONE PIVALATE
     Indication: Product used for unknown indication
     Dosage: UNK
     Route: 058
  19. MINOCYCLINE [Suspect]
     Active Substance: MINOCYCLINE HYDROCHLORIDE
     Indication: Product used for unknown indication
     Dosage: UNK
     Route: 065
  20. NUCALA [Suspect]
     Active Substance: MEPOLIZUMAB
     Indication: Product used for unknown indication
     Dosage: UNK
     Route: 065
  21. TOPIRAMATE [Suspect]
     Active Substance: TOPIRAMATE
     Indication: Migraine
     Dosage: 25 MG, QD
     Route: 065
  22. TOPIRAMATE [Suspect]
     Active Substance: TOPIRAMATE
     Dosage: 25 MG (1 EVERY 2 DAYS)
     Route: 065
  23. TOPIRAMATE [Suspect]
     Active Substance: TOPIRAMATE
     Dosage: 3 MG, QD
     Route: 065
  24. PHTHALYLSULFATHIAZOLE [Suspect]
     Active Substance: PHTHALYLSULFATHIAZOLE
     Indication: Rheumatoid arthritis
     Dosage: 500 MG
     Route: 048
  25. PHTHALYLSULFATHIAZOLE [Suspect]
     Active Substance: PHTHALYLSULFATHIAZOLE
     Dosage: 1000 MG
     Route: 048
  26. ASCORBIC ACID [Suspect]
     Active Substance: ASCORBIC ACID
     Indication: Product used for unknown indication
     Dosage: UNK
     Route: 065
  27. TRETINOIN [Suspect]
     Active Substance: TRETINOIN
     Indication: Product used for unknown indication
     Dosage: UNK
     Route: 065
  28. BOTULINUM TOXIN TYPE A [Suspect]
     Active Substance: BOTULINUM TOXIN TYPE A
     Indication: Product used for unknown indication
     Dosage: UNK
     Route: 030
  29. PHENYLEPHRINE HYDROCHLORIDE [Suspect]
     Active Substance: PHENYLEPHRINE HYDROCHLORIDE
     Indication: Rheumatoid arthritis
     Dosage: UNK
     Route: 030
  30. FINACEA [Suspect]
     Active Substance: AZELAIC ACID
     Indication: Product used for unknown indication
     Dosage: UNK
     Route: 065
  31. NAPROXEN [Suspect]
     Active Substance: NAPROXEN
     Indication: Rheumatoid arthritis
     Dosage: 500 MG
     Route: 065
  32. PREDNISONE [Suspect]
     Active Substance: PREDNISONE
     Indication: Rheumatoid arthritis
     Dosage: 40 MG
     Route: 048
  33. PREDNISONE [Suspect]
     Active Substance: PREDNISONE
     Dosage: 5 MG
     Route: 048
  34. PREDNISONE [Suspect]
     Active Substance: PREDNISONE
     Dosage: 1 MG
     Route: 048
  35. RAMIPRIL [Suspect]
     Active Substance: RAMIPRIL
     Indication: Rheumatoid arthritis
     Dosage: UNK
     Route: 016
  36. RAMIPRIL [Suspect]
     Active Substance: RAMIPRIL
     Dosage: UNK
     Route: 042
  37. METHYLPREDNISOLONE [Suspect]
     Active Substance: METHYLPREDNISOLONE
     Indication: Product used for unknown indication
     Dosage: UNK
     Route: 065
  38. HYDROXYCHLOROQUINE [Suspect]
     Active Substance: HYDROXYCHLOROQUINE
     Indication: Rheumatoid arthritis
     Dosage: 400 MG, QD
     Route: 048
  39. HYDROXYCHLOROQUINE [Suspect]
     Active Substance: HYDROXYCHLOROQUINE
     Dosage: 40 MG
     Route: 048
  40. HYDROXYCHLOROQUINE [Suspect]
     Active Substance: HYDROXYCHLOROQUINE
     Dosage: UNK UNK, QD
     Route: 048
  41. PHOSPHORUS [Suspect]
     Active Substance: PHOSPHORUS
     Indication: Rheumatoid arthritis
     Dosage: UNK
     Route: 065
  42. METHOTREXATE [Suspect]
     Active Substance: METHOTREXATE
     Indication: Rheumatoid arthritis
     Dosage: 20 MG, QD
     Route: 048
  43. METHOTREXATE [Suspect]
     Active Substance: METHOTREXATE
     Dosage: 25 MG, WE (EVERY WEEK)
     Route: 048
  44. ERGOCALCIFEROL [Suspect]
     Active Substance: ERGOCALCIFEROL
     Indication: Product used for unknown indication
     Dosage: UNK
     Route: 065
  45. CORTISONE ACETATE [Suspect]
     Active Substance: CORTISONE ACETATE
     Indication: Rheumatoid arthritis
     Dosage: 25 MG
     Route: 061
  46. BUPRENORPHINE [Suspect]
     Active Substance: BUPRENORPHINE
     Indication: Product used for unknown indication
     Dosage: UNK
     Route: 065
  47. FLUTICASONE PROPIONATE [Suspect]
     Active Substance: FLUTICASONE PROPIONATE
     Indication: Product used for unknown indication
     Dosage: UNK
     Route: 065
  48. FOSAMAX [Suspect]
     Active Substance: ALENDRONATE SODIUM
     Indication: Rheumatoid arthritis
     Dosage: UNK
     Route: 065
  49. TRAZODONE [Suspect]
     Active Substance: TRAZODONE HYDROCHLORIDE
     Indication: Product used for unknown indication
     Dosage: 1 DF, QD
     Route: 065
  50. ACTEMRA [Suspect]
     Active Substance: TOCILIZUMAB
     Indication: Rheumatoid arthritis
     Dosage: 20 MG
     Route: 065
  51. ACTEMRA [Suspect]
     Active Substance: TOCILIZUMAB
     Dosage: UNK
     Route: 058
  52. ACTEMRA [Suspect]
     Active Substance: TOCILIZUMAB
     Dosage: 728.0 MG
     Route: 042
  53. ACTEMRA [Suspect]
     Active Substance: TOCILIZUMAB
     Dosage: 2912 MG
     Route: 042
  54. ACTEMRA [Suspect]
     Active Substance: TOCILIZUMAB
     Dosage: 3011.2 MG
     Route: 042
  55. ACTEMRA [Suspect]
     Active Substance: TOCILIZUMAB
     Dosage: 752.8 EQUIVALANT
     Route: 042
  56. DIETARY SUPPLEMENT\HERBALS [Suspect]
     Active Substance: DIETARY SUPPLEMENT\HERBALS
     Indication: Product used for unknown indication
     Dosage: UNK
  57. ACETAMINOPHEN [Concomitant]
     Active Substance: ACETAMINOPHEN
     Indication: Product used for unknown indication
     Dosage: UNK
     Route: 065
  58. TRAMADOL HYDROCHLORIDE [Suspect]
     Active Substance: TRAMADOL HYDROCHLORIDE
     Indication: Product used for unknown indication
     Dosage: UNK
     Route: 065
  59. COSENTYX [Suspect]
     Active Substance: SECUKINUMAB
     Indication: Arthropathy
     Dosage: UNK
     Route: 065
  60. COSENTYX [Suspect]
     Active Substance: SECUKINUMAB
     Indication: Psoriasis
  61. ADALIMUMAB [Suspect]
     Active Substance: ADALIMUMAB\ISOPROPYL ALCOHOL
     Indication: Rheumatoid arthritis
     Dosage: UNK
     Route: 057
  62. ADALIMUMAB [Suspect]
     Active Substance: ADALIMUMAB\ISOPROPYL ALCOHOL
     Dosage: 40 MG
     Route: 058
  63. ADALIMUMAB [Suspect]
     Active Substance: ADALIMUMAB\ISOPROPYL ALCOHOL
     Dosage: UNK (DOSAGE FORM: SOLUTION SUBCUTANEOUS)
     Route: 058
  64. BERINERT [Suspect]
     Active Substance: HUMAN C1-ESTERASE INHIBITOR
     Indication: Product used for unknown indication
     Dosage: UNK
     Route: 065
  65. ETANERCEPT [Suspect]
     Active Substance: ETANERCEPT
     Indication: Rheumatoid arthritis
     Dosage: 50 MG, WE (QW) (1 EVERY 1 WEEKS)
     Route: 058
  66. GOLD SODIUM THIOMALATE [Suspect]
     Active Substance: GOLD SODIUM THIOMALATE
     Indication: Product used for unknown indication
     Dosage: UNK
     Route: 030
  67. CALTRATE WITH VITAMIN D [Suspect]
     Active Substance: CALCIUM CARBONATE\CHOLECALCIFEROL
     Indication: Product used for unknown indication
     Dosage: UNK
     Route: 065
  68. CALCIUM ASCORBATE [Suspect]
     Active Substance: CALCIUM ASCORBATE
     Indication: Product used for unknown indication
     Dosage: UNK
     Route: 065
  69. FOLIC ACID [Suspect]
     Active Substance: FOLIC ACID
     Indication: Rheumatoid arthritis
     Dosage: 0.5 MG
     Route: 065
  70. FOLIC ACID [Suspect]
     Active Substance: FOLIC ACID
     Dosage: 1 MG
     Route: 065
  71. FOLIC ACID [Suspect]
     Active Substance: FOLIC ACID
     Dosage: 25 MG
     Route: 048
  72. FOLIC ACID [Suspect]
     Active Substance: FOLIC ACID
     Dosage: 500 MG
     Route: 065
  73. BETAMETHASONE [Suspect]
     Active Substance: BETAMETHASONE\BETAMETHASONE DIPROPIONATE
     Indication: Product used for unknown indication
     Dosage: UNK
     Route: 065
  74. MYRBETRIQ [Suspect]
     Active Substance: MIRABEGRON
     Indication: Product used for unknown indication
     Dosage: 1 DOSAGE FORM, QD (DOSAGE FORM: TABLET (EXTENDED-RELEASE))
     Route: 048
  75. MYRBETRIQ [Suspect]
     Active Substance: MIRABEGRON
     Dosage: 1 DF, QD
     Route: 048
  76. MYRBETRIQ [Suspect]
     Active Substance: MIRABEGRON
     Dosage: 1 DOSAGE FORM, QD (DOSAGE FORM: TABLET (EXTENDED-RELEASE))
     Route: 065
  77. ABATACEPT [Suspect]
     Active Substance: ABATACEPT
     Indication: Rheumatoid arthritis
     Dosage: UNK
     Route: 042
  78. ATOMOXETINE [Suspect]
     Active Substance: ATOMOXETINE\ATOMOXETINE HYDROCHLORIDE
     Indication: Migraine
     Dosage: 2 DF, QD (1 DOSAGE FORM, BID)
     Route: 065
  79. ATOMOXETINE [Suspect]
     Active Substance: ATOMOXETINE\ATOMOXETINE HYDROCHLORIDE
     Dosage: 2 DF, QD (1 DOSAGE FORM, BID)
     Route: 065
  80. ACETAMINOPHEN\CODEINE PHOSPHATE [Suspect]
     Active Substance: ACETAMINOPHEN\CODEINE PHOSPHATE
     Indication: Rheumatoid arthritis
     Dosage: UNK
     Route: 065
  81. DICLOFENAC DIETHYLAMINE [Suspect]
     Active Substance: DICLOFENAC DIETHYLAMINE
     Indication: Product used for unknown indication
     Dosage: UNK
     Route: 065
  82. AZATHIOPRINE [Suspect]
     Active Substance: AZATHIOPRINE
     Indication: Product used for unknown indication
     Dosage: UNK
     Route: 065
  83. DOMPERIDONE [Suspect]
     Active Substance: DOMPERIDONE
     Indication: Product used for unknown indication
     Dosage: UNK
     Route: 065
  84. SIRUKUMAB [Suspect]
     Active Substance: SIRUKUMAB
     Indication: Product used for unknown indication
     Dosage: UNK
     Route: 065
  85. RANITIDINE [Suspect]
     Active Substance: RANITIDINE
     Indication: Rheumatoid arthritis
     Dosage: UNK
     Route: 065
  86. STELARA [Suspect]
     Active Substance: USTEKINUMAB
     Indication: Product used for unknown indication
     Dosage: 40 MG (SOLUTION SUBCUTANEOUS)
     Route: 058
  87. CELECOXIB [Suspect]
     Active Substance: CELECOXIB
     Indication: Product used for unknown indication
     Dosage: 2 DF (DOSAGE FORM), QD
     Route: 065
  88. CELECOXIB [Suspect]
     Active Substance: CELECOXIB
     Dosage: 1 DF(DOSAGE FORM), QD
     Route: 065
  89. MAGNESIUM [Suspect]
     Active Substance: MAGNESIUM
     Indication: Product used for unknown indication
     Dosage: UNK
     Route: 065
  90. DESOXIMETASONE [Suspect]
     Active Substance: DESOXIMETASONE
     Indication: Rheumatoid arthritis
     Dosage: UNK
     Route: 058
  91. DESOXIMETASONE [Suspect]
     Active Substance: DESOXIMETASONE
     Dosage: 25 MG
     Route: 065
  92. DESOXIMETASONE [Suspect]
     Active Substance: DESOXIMETASONE
     Dosage: 25 MG
     Route: 048
  93. TRIAMCINOLONE [Suspect]
     Active Substance: TRIAMCINOLONE
     Indication: Product used for unknown indication
     Dosage: 25 MG
     Route: 065
  94. SIMPONI [Suspect]
     Active Substance: GOLIMUMAB
     Indication: Rheumatoid arthritis
     Dosage: UNK
     Route: 058
  95. CYCLOBENZAPRINE [Suspect]
     Active Substance: CYCLOBENZAPRINE
     Indication: Product used for unknown indication
     Dosage: 1 DF(DOSAGE FORM), QD
     Route: 065
  96. OTEZLA [Suspect]
     Active Substance: APREMILAST
     Indication: Product used for unknown indication
     Dosage: 6 MG, QD (3 MG, BID)
     Route: 065
  97. HYDROCORTISONE PROBUTATE [Suspect]
     Active Substance: HYDROCORTISONE PROBUTATE
     Indication: Rheumatoid arthritis
     Dosage: UNK
  98. PSEUDOEPHEDRINE HYDROCHLORIDE [Suspect]
     Active Substance: PSEUDOEPHEDRINE HYDROCHLORIDE
     Indication: Rheumatoid arthritis
     Dosage: 25 MG
     Route: 065
  99. PSEUDOEPHEDRINE HYDROCHLORIDE [Suspect]
     Active Substance: PSEUDOEPHEDRINE HYDROCHLORIDE
     Dosage: 10 MG
     Route: 065
  100. PSEUDOEPHEDRINE HYDROCHLORIDE [Suspect]
     Active Substance: PSEUDOEPHEDRINE HYDROCHLORIDE
     Dosage: 1 MG
     Route: 065
  101. LEVOMILNACIPRAN [Suspect]
     Active Substance: LEVOMILNACIPRAN
     Indication: Product used for unknown indication
     Dosage: UNK
     Route: 065
  102. SARILUMAB [Suspect]
     Active Substance: SARILUMAB
     Indication: Rheumatoid arthritis
     Dosage: UNK
     Route: 065
  103. INFLIXIMAB [Suspect]
     Active Substance: INFLIXIMAB
     Indication: Rheumatoid arthritis
     Dosage: UNK
     Route: 042
  104. XELJANZ [Suspect]
     Active Substance: TOFACITINIB CITRATE
     Indication: Rheumatoid arthritis
     Dosage: 5 MG, BID
     Route: 065
  105. PANTOPRAZOLE SODIUM [Suspect]
     Active Substance: PANTOPRAZOLE SODIUM
     Indication: Product used for unknown indication
     Dosage: UNK
     Route: 065
  106. AIMOVIG [Suspect]
     Active Substance: ERENUMAB-AOOE
     Indication: Rheumatoid arthritis
     Dosage: UNK
     Route: 065
  107. AIMOVIG [Suspect]
     Active Substance: ERENUMAB-AOOE
     Indication: Migraine
  108. SULFASALAZINE [Suspect]
     Active Substance: SULFASALAZINE
     Indication: Rheumatoid arthritis
     Dosage: 1 DF, BID
     Route: 048
  109. SULFASALAZINE [Suspect]
     Active Substance: SULFASALAZINE
     Dosage: 100 MG
     Route: 048
  110. SULFASALAZINE [Suspect]
     Active Substance: SULFASALAZINE
     Dosage: 1 DF (DOSAGE FORM)
     Route: 065
  111. SULFASALAZINE [Suspect]
     Active Substance: SULFASALAZINE
     Dosage: 1000 MG
     Route: 048
  112. SULFASALAZINE [Suspect]
     Active Substance: SULFASALAZINE
     Dosage: 300 MG, QD
     Route: 048
  113. SULFASALAZINE [Suspect]
     Active Substance: SULFASALAZINE
     Dosage: 2 G, QD
     Route: 048
  114. SULFASALAZINE [Suspect]
     Active Substance: SULFASALAZINE
     Dosage: 1 G, QD
     Route: 058
  115. SULFASALAZINE [Suspect]
     Active Substance: SULFASALAZINE
     Dosage: 500 MG
     Route: 048
  116. SULFASALAZINE [Suspect]
     Active Substance: SULFASALAZINE
     Dosage: 1 G, BID
     Route: 048
  117. RITUXIMAB [Suspect]
     Active Substance: RITUXIMAB
     Indication: Rheumatoid arthritis
     Dosage: UNK
     Route: 043
  118. RITUXIMAB [Suspect]
     Active Substance: RITUXIMAB
     Dosage: UNK
     Route: 058
  119. RITUXIMAB [Suspect]
     Active Substance: RITUXIMAB
     Dosage: 365 MG
     Route: 065
  120. RITUXIMAB [Suspect]
     Active Substance: RITUXIMAB
     Dosage: UNK
     Route: 042
  121. HYDROMORPHONE [Suspect]
     Active Substance: HYDROMORPHONE
     Indication: Rheumatoid arthritis
     Dosage: UNK
     Route: 065
  122. CANDESARTAN [Suspect]
     Active Substance: CANDESARTAN
     Indication: Rheumatoid arthritis
     Dosage: UNK
     Route: 048
  123. CANDESARTAN [Suspect]
     Active Substance: CANDESARTAN
     Indication: Migraine
  124. LAMOTRIGINE [Suspect]
     Active Substance: LAMOTRIGINE
     Indication: Product used for unknown indication
     Dosage: 25 MG
     Route: 048
  125. LAMOTRIGINE [Suspect]
     Active Substance: LAMOTRIGINE
     Dosage: 25 MG, EVERY 2 DAYS
     Route: 048
  126. LAMOTRIGINE [Suspect]
     Active Substance: LAMOTRIGINE
     Dosage: 25 MG, EVERY 2 DAYS
     Route: 048
  127. CHLORHEXIDINE GLUCONATE [Suspect]
     Active Substance: CHLORHEXIDINE GLUCONATE
     Indication: Product used for unknown indication
  128. RITUXIMAB [Suspect]
     Active Substance: RITUXIMAB
     Indication: Product used for unknown indication
     Dosage: 365 MILLIGRAM

REACTIONS (98)
  - Depression [Fatal]
  - Irritable bowel syndrome [Fatal]
  - Product quality issue [Fatal]
  - Wound infection [Fatal]
  - Back injury [Fatal]
  - Inflammation [Fatal]
  - Systemic lupus erythematosus [Fatal]
  - Therapeutic product effect decreased [Fatal]
  - Glossodynia [Fatal]
  - Muscle spasms [Fatal]
  - Vomiting [Fatal]
  - Pain [Fatal]
  - Arthropathy [Fatal]
  - Nail disorder [Fatal]
  - Blood cholesterol increased [Fatal]
  - Infusion related reaction [Fatal]
  - Confusional state [Fatal]
  - Rheumatoid arthritis [Fatal]
  - Urticaria [Fatal]
  - Intentional product use issue [Fatal]
  - Therapeutic product effect incomplete [Fatal]
  - Injury [Fatal]
  - Impaired healing [Fatal]
  - Lung disorder [Fatal]
  - Abdominal discomfort [Fatal]
  - Nasopharyngitis [Fatal]
  - Nausea [Fatal]
  - Weight increased [Fatal]
  - Muscle injury [Fatal]
  - Hepatic enzyme increased [Fatal]
  - Pain in extremity [Fatal]
  - Obesity [Fatal]
  - Peripheral swelling [Fatal]
  - Drug intolerance [Fatal]
  - Dizziness [Fatal]
  - Swelling [Fatal]
  - Pneumonia [Fatal]
  - Pericarditis [Fatal]
  - Blister [Fatal]
  - Asthenia [Fatal]
  - Liver injury [Fatal]
  - Taste disorder [Fatal]
  - Bursitis [Fatal]
  - Joint range of motion decreased [Fatal]
  - Anti-cyclic citrullinated peptide antibody positive [Fatal]
  - Facet joint syndrome [Fatal]
  - Live birth [Unknown]
  - Lip dry [Fatal]
  - Gastrooesophageal reflux disease [Fatal]
  - Dry mouth [Fatal]
  - Folliculitis [Fatal]
  - Osteoarthritis [Fatal]
  - Drug hypersensitivity [Fatal]
  - Contraindicated product administered [Fatal]
  - Joint swelling [Fatal]
  - Infusion site reaction [Fatal]
  - Hypertension [Fatal]
  - Breast cancer stage III [Fatal]
  - General physical health deterioration [Fatal]
  - C-reactive protein increased [Fatal]
  - Musculoskeletal pain [Fatal]
  - Gait inability [Fatal]
  - Rheumatic fever [Fatal]
  - Blepharospasm [Fatal]
  - Stomatitis [Fatal]
  - Liver function test increased [Fatal]
  - Alopecia [Fatal]
  - Sleep disorder [Fatal]
  - Duodenal ulcer perforation [Fatal]
  - Hypercholesterolaemia [Fatal]
  - Muscular weakness [Fatal]
  - Synovitis [Fatal]
  - Abdominal pain upper [Fatal]
  - Helicobacter infection [Fatal]
  - Diarrhoea [Fatal]
  - Drug ineffective [Fatal]
  - Psoriatic arthropathy [Fatal]
  - Peripheral venous disease [Fatal]
  - Night sweats [Fatal]
  - Arthralgia [Fatal]
  - Lower respiratory tract infection [Fatal]
  - Onychomadesis [Fatal]
  - Epilepsy [Fatal]
  - Paraesthesia [Fatal]
  - Maternal exposure during pregnancy [Fatal]
  - Product use in unapproved indication [Fatal]
  - Pemphigus [Fatal]
  - Rash [Fatal]
  - Mobility decreased [Fatal]
  - Wound [Fatal]
  - Hand deformity [Fatal]
  - Type 2 diabetes mellitus [Fatal]
  - Product use issue [Fatal]
  - Neck pain [Fatal]
  - Hypoaesthesia [Fatal]
  - Memory impairment [Fatal]
  - Treatment failure [Fatal]
  - Fibromyalgia [Fatal]
